FAERS Safety Report 9423632 (Version 1)
Quarter: 2013Q3

REPORT INFORMATION
  Report Type: Spontaneous
  Country: SI (occurrence: SI)
  Receive Date: 20130726
  Receipt Date: 20130726
  Transmission Date: 20140515
  Serious: No
  Sender: FDA-Public Use
  Company Number: SI-RB-056407-13

PATIENT
  Sex: Female

DRUGS (2)
  1. SUBOXONE TABLET [Suspect]
     Indication: PRODUCT USED FOR UNKNOWN INDICATION
     Route: 064
     Dates: start: 20120213, end: 20120529
  2. NICOTINE [Suspect]
     Indication: PRODUCT USED FOR UNKNOWN INDICATION
     Dosage: MOTHER SMOKED 20 CIGARETTES A DAY DURING PREGNANCY
     Route: 064
     Dates: start: 20120213, end: 201212

REACTIONS (2)
  - Foetal exposure during pregnancy [Recovered/Resolved]
  - Hospitalisation [Unknown]
